FAERS Safety Report 9837428 (Version 1)
Quarter: 2014Q1

REPORT INFORMATION
  Report Type: Spontaneous
  Country: US (occurrence: None)
  Receive Date: 20140117
  Receipt Date: 20140117
  Transmission Date: 20141002
  Serious: No
  Sender: FDA-Public Use
  Company Number: None

PATIENT
  Age: 20 Year
  Sex: Female
  Weight: 63.5 kg

DRUGS (1)
  1. ADDERALL [Suspect]
     Dosage: 1, TA, QD   ONCE DAILY TAKEN BY MOUTH
     Route: 048

REACTIONS (5)
  - Hunger [None]
  - Anaemia [None]
  - Gastrointestinal disorder [None]
  - Panic attack [None]
  - Weight decreased [None]
